FAERS Safety Report 9204722 (Version 1)
Quarter: 2013Q2

REPORT INFORMATION
  Report Type: Spontaneous
  Country: IT (occurrence: IT)
  Receive Date: 20130402
  Receipt Date: 20130402
  Transmission Date: 20140414
  Serious: Yes (Hospitalization)
  Sender: FDA-Public Use
  Company Number: IT-ABBOTT-13X-083-1069796-00

PATIENT
  Age: 60 Year
  Sex: Male

DRUGS (12)
  1. DEPAKINE CHRONO [Suspect]
     Indication: INTENTIONAL OVERDOSE
     Dosage: EXTENDED RELEASE
     Route: 048
     Dates: start: 20130309, end: 20130309
  2. METFORMIN [Suspect]
     Indication: INTENTIONAL OVERDOSE
     Route: 048
     Dates: start: 20130309, end: 20130309
  3. SEROQUEL [Concomitant]
     Indication: PRODUCT USED FOR UNKNOWN INDICATION
  4. TRIATEC [Concomitant]
     Indication: PRODUCT USED FOR UNKNOWN INDICATION
  5. LASIX [Concomitant]
     Indication: PRODUCT USED FOR UNKNOWN INDICATION
  6. ZYLORIC [Concomitant]
     Indication: PRODUCT USED FOR UNKNOWN INDICATION
  7. SILVER SULFADIAZINE [Concomitant]
     Indication: PRODUCT USED FOR UNKNOWN INDICATION
  8. SELOKEN [Concomitant]
     Indication: PRODUCT USED FOR UNKNOWN INDICATION
  9. CARDIOASPIRIN [Concomitant]
     Indication: PRODUCT USED FOR UNKNOWN INDICATION
  10. ESAPENT [Concomitant]
     Indication: PRODUCT USED FOR UNKNOWN INDICATION
  11. TAVOR [Concomitant]
     Indication: PRODUCT USED FOR UNKNOWN INDICATION
  12. SINVACOR [Concomitant]
     Indication: PRODUCT USED FOR UNKNOWN INDICATION

REACTIONS (2)
  - Drug abuser [Recovered/Resolved]
  - Intentional overdose [Unknown]
